FAERS Safety Report 10247061 (Version 1)
Quarter: 2014Q2

REPORT INFORMATION
  Report Type: Spontaneous
  Country: US (occurrence: None)
  Receive Date: 20140617
  Receipt Date: 20140617
  Transmission Date: 20141212
  Serious: Yes (Other)
  Sender: FDA-Public Use
  Company Number: None

PATIENT
  Age: 20 Year
  Sex: Male

DRUGS (2)
  1. ABILIFY MAINTENA [Suspect]
     Dosage: 400 MG (2 ML), ONCE, IM - RIGHT DORSOGLUTAL?
     Route: 030
  2. HALOPERIDOL DECANOATE [Suspect]
     Dosage: 100 MG (1 ML) ONCE IM - LEFT DELTOID
     Route: 030

REACTIONS (1)
  - Convulsion [None]
